FAERS Safety Report 5464018-2 (Version None)
Quarter: 2007Q3

REPORT INFORMATION
  Report Type: 
  Country: None (occurrence: None)
  Receive Date: 20070921
  Receipt Date: 20070912
  Transmission Date: 20080115
  Serious: Yes (Death, Hospitalization)
  Sender: FDA-Public Use
  Company Number: HR-NOVOPROD-266664

PATIENT

DRUGS (7)
  1. NOVOSEVEN [Suspect]
     Indication: ACQUIRED HAEMOPHILIA
     Dosage: 10.8 MG, QD
     Route: 042
     Dates: start: 20070722, end: 20070722
  2. NOVOSEVEN [Suspect]
     Dosage: 8.4 MG, QD
     Route: 042
     Dates: start: 20070723, end: 20070723
  3. NOVOSEVEN [Suspect]
     Dosage: 3.6 MG, QD
     Route: 042
     Dates: start: 20070724, end: 20070729
  4. FRESH FROZEN PLASMA [Concomitant]
     Dosage: 1860 ML, UNK
     Route: 042
     Dates: start: 20070722, end: 20070722
  5. BLOOD CELLS, PACKED HUMAN [Concomitant]
     Dosage: 40 DOSES
     Route: 042
     Dates: start: 20070722, end: 20070722
  6. PLATELETS [Concomitant]
     Dosage: 50 DOSES
     Route: 042
     Dates: start: 20070723, end: 20070723
  7. CORTICOSTEROIDS [Concomitant]
     Indication: ANAEMIA HAEMOLYTIC AUTOIMMUNE

REACTIONS (3)
  - MULTI-ORGAN FAILURE [None]
  - PNEUMONIA [None]
  - SEPTIC SHOCK [None]
